FAERS Safety Report 18868879 (Version 2)
Quarter: 2021Q1

REPORT INFORMATION
  Report Type: Spontaneous
  Country: JP (occurrence: JP)
  Receive Date: 20210209
  Receipt Date: 20210223
  Transmission Date: 20210420
  Serious: Yes (Other)
  Sender: FDA-Public Use
  Company Number: JP-MYOVANT SCIENCES GMBH-2021MYSCI0100013

PATIENT
  Age: 29 Year
  Sex: Female

DRUGS (3)
  1. RELUMINA [Suspect]
     Active Substance: RELUGOLIX
     Indication: UTERINE LEIOMYOMA
     Dosage: UNK
     Route: 048
  2. RELUMINA [Suspect]
     Active Substance: RELUGOLIX
     Indication: MENORRHAGIA
  3. RELUMINA [Suspect]
     Active Substance: RELUGOLIX
     Indication: ANAEMIA

REACTIONS (1)
  - Diabetes mellitus [Recovering/Resolving]
